FAERS Safety Report 13586680 (Version 7)
Quarter: 2017Q3

REPORT INFORMATION
  Report Type: Spontaneous
  Country: KR (occurrence: KR)
  Receive Date: 20170526
  Receipt Date: 20170912
  Transmission Date: 20171127
  Serious: Yes (Hospitalization)
  Sender: FDA-Public Use
  Company Number: KR-009507513-1705KOR011224

PATIENT
  Age: 53 Year
  Sex: Female
  Weight: 57.2 kg

DRUGS (24)
  1. EMEND (FOSAPREPITANT DIMEGLUMINE) [Suspect]
     Active Substance: FOSAPREPITANT DIMEGLUMINE
     Dosage: 150 MG, ONCE
     Route: 042
     Dates: start: 20170213, end: 20170213
  2. CISPLAN [Concomitant]
     Active Substance: CISPLATIN
     Dosage: 100 MG, QD, ROUTE: INF, CYCLE 2
     Dates: start: 20160923, end: 20160923
  3. CISPLAN [Concomitant]
     Active Substance: CISPLATIN
     Dosage: 100 MG, QD, ROUTE: INF, CYCLE 4
     Dates: start: 20170102, end: 20170102
  4. CISPLAN [Concomitant]
     Active Substance: CISPLATIN
     Dosage: 100 MG, QD, ROUTE: INF, CYCLE 5
     Dates: start: 20170123, end: 20170123
  5. DEXAMETHASONE. [Concomitant]
     Active Substance: DEXAMETHASONE
     Dosage: 12 MG, QD, ROUTE: INF
     Dates: start: 20160102, end: 20160102
  6. ALOXI [Concomitant]
     Active Substance: PALONOSETRON HYDROCHLORIDE
     Dosage: 0.25 MG, QD, ROUTE: INF
     Dates: start: 20161014, end: 20161014
  7. CISPLAN [Concomitant]
     Active Substance: CISPLATIN
     Dosage: 100 MG, QD, ROUTE: INF, CYCLE 3
     Dates: start: 20161014, end: 20161014
  8. DEXAMETHASONE. [Concomitant]
     Active Substance: DEXAMETHASONE
     Indication: PROPHYLAXIS OF NAUSEA AND VOMITING
     Dosage: 12 MG, QD, ROUTE: INF
     Dates: start: 20160901, end: 20160901
  9. DEXAMETHASONE. [Concomitant]
     Active Substance: DEXAMETHASONE
     Dosage: 12 MG, QD, ROUTE: INF
     Dates: start: 20160213, end: 20160213
  10. ALOXI [Concomitant]
     Active Substance: PALONOSETRON HYDROCHLORIDE
     Dosage: 0.25 MG, QD, ROUTE: INF
     Dates: start: 20160923, end: 20160923
  11. ALOXI [Concomitant]
     Active Substance: PALONOSETRON HYDROCHLORIDE
     Dosage: 0.25 MG, QD, ROUTE: INF
     Dates: start: 20170123, end: 20170123
  12. EMEND (FOSAPREPITANT DIMEGLUMINE) [Suspect]
     Active Substance: FOSAPREPITANT DIMEGLUMINE
     Dosage: 150 MG, ONCE
     Route: 042
     Dates: start: 20170123, end: 20170123
  13. CISPLAN [Concomitant]
     Active Substance: CISPLATIN
     Indication: GASTRIC CANCER
     Dosage: 127.2 MG, QD, ROUTE: INF, CYCLE 1
     Dates: start: 20160901, end: 20160901
  14. EMEND (FOSAPREPITANT DIMEGLUMINE) [Suspect]
     Active Substance: FOSAPREPITANT DIMEGLUMINE
     Dosage: 150 MG, ONCE
     Route: 042
     Dates: start: 20161014, end: 20161014
  15. ALOXI [Concomitant]
     Active Substance: PALONOSETRON HYDROCHLORIDE
     Indication: PROPHYLAXIS OF NAUSEA AND VOMITING
     Dosage: 0.25 MG, QD, ROUTE: INF
     Dates: start: 20160901, end: 20160901
  16. EMEND (FOSAPREPITANT DIMEGLUMINE) [Suspect]
     Active Substance: FOSAPREPITANT DIMEGLUMINE
     Dosage: 150 MG, ONCE
     Route: 042
     Dates: start: 20160923, end: 20160923
  17. DEXAMETHASONE. [Concomitant]
     Active Substance: DEXAMETHASONE
     Dosage: 12 MG, QD, ROUTE: INF
     Dates: start: 20160123, end: 20160123
  18. ALOXI [Concomitant]
     Active Substance: PALONOSETRON HYDROCHLORIDE
     Dosage: 0.25 MG, QD, ROUTE: INF
     Dates: start: 20170102, end: 20170102
  19. ALOXI [Concomitant]
     Active Substance: PALONOSETRON HYDROCHLORIDE
     Dosage: 0.25 MG, QD, ROUTE: INF
     Dates: start: 20170213, end: 20170213
  20. EMEND (FOSAPREPITANT DIMEGLUMINE) [Suspect]
     Active Substance: FOSAPREPITANT DIMEGLUMINE
     Indication: PROPHYLAXIS OF NAUSEA AND VOMITING
     Dosage: 150 MG, ONCE
     Route: 042
     Dates: start: 20160901, end: 20160901
  21. EMEND (FOSAPREPITANT DIMEGLUMINE) [Suspect]
     Active Substance: FOSAPREPITANT DIMEGLUMINE
     Dosage: 150 MG, ONCE
     Route: 042
     Dates: start: 20170102, end: 20170102
  22. CISPLAN [Concomitant]
     Active Substance: CISPLATIN
     Dosage: 100 MG, QD, ROUTE: INF, CYCLE 6
     Dates: start: 20170213, end: 20170213
  23. DEXAMETHASONE. [Concomitant]
     Active Substance: DEXAMETHASONE
     Dosage: 12 MG, QD, ROUTE: INF
     Dates: start: 20160923, end: 20160923
  24. DEXAMETHASONE. [Concomitant]
     Active Substance: DEXAMETHASONE
     Dosage: 12 MG, QD, ROUTE: INF
     Dates: start: 20161014, end: 20161014

REACTIONS (4)
  - Drug ineffective [Unknown]
  - Palmar-plantar erythrodysaesthesia syndrome [Not Recovered/Not Resolved]
  - Vomiting [Recovered/Resolved]
  - Nausea [Recovered/Resolved]

NARRATIVE: CASE EVENT DATE: 20170123
